FAERS Safety Report 17779662 (Version 1)
Quarter: 2020Q2

REPORT INFORMATION
  Report Type: Spontaneous
  Country: US (occurrence: US)
  Receive Date: 20200513
  Receipt Date: 20200513
  Transmission Date: 20200714
  Serious: No
  Sender: FDA-Public Use
  Company Number: US-SA-2020SA122319

PATIENT
  Sex: Male

DRUGS (1)
  1. MOZOBIL [Suspect]
     Active Substance: PLERIXAFOR
     Indication: STEM CELL THERAPY
     Dosage: UNK, UNK UNK

REACTIONS (1)
  - White blood cell count abnormal [Not Recovered/Not Resolved]
